FAERS Safety Report 8435051-3 (Version None)
Quarter: 2012Q2

REPORT INFORMATION
  Report Type: 
  Country: None (occurrence: None)
  Receive Date: 20120608
  Receipt Date: 20120529
  Transmission Date: 20120825
  Serious: Yes (Other)
  Sender: FDA-Public Use
  Company Number: 2012-FR-0005

PATIENT
  Age: 53 Year
  Sex: Female

DRUGS (1)
  1. FENTANYL [Suspect]
     Indication: NEURALGIA
     Dosage: 200 MCG X 1 PER DAY ORAL
     Route: 048
     Dates: start: 20110901, end: 20110901

REACTIONS (4)
  - OFF LABEL USE [None]
  - NIGHTMARE [None]
  - HALLUCINATION [None]
  - NEUROPATHY PERIPHERAL [None]
